FAERS Safety Report 7635428-X (Version None)
Quarter: 2011Q3

REPORT INFORMATION
  Report Type: 
  Country: None (occurrence: None)
  Receive Date: 20110726
  Receipt Date: 20110711
  Transmission Date: 20111222
  Serious: Yes (Death)
  Sender: FDA-Public Use
  Company Number: JP-MEDIMMUNE-MEDI-0009653

PATIENT
  Sex: Male
  Weight: 5.84 kg

DRUGS (1)
  1. SYNAGIS [Suspect]
     Dates: start: 20091109, end: 20091109

REACTIONS (2)
  - PYREXIA [None]
  - CARDIO-RESPIRATORY ARREST [None]
